FAERS Safety Report 4745666-1 (Version None)
Quarter: 2005Q3

REPORT INFORMATION
  Report Type: 
  Country: None (occurrence: None)
  Receive Date: 20050811
  Receipt Date: 20050726
  Transmission Date: 20060218
  Serious: Yes (Hospitalization)
  Sender: FDA-Public Use
  Company Number: DSA_26867_2005

PATIENT
  Age: 69 Year
  Sex: Female

DRUGS (2)
  1. DILTIAZEM HYDROCHLORIDE [Suspect]
     Dosage: 300 MG Q DAY PO
     Route: 048
     Dates: start: 20040506, end: 20040522
  2. TANAKAN [Concomitant]

REACTIONS (4)
  - CHEILITIS [None]
  - PERIVASCULAR DERMATITIS [None]
  - RASH MACULO-PAPULAR [None]
  - SKIN TEST POSITIVE [None]
